FAERS Safety Report 4864250-2 (Version None)
Quarter: 2005Q4

REPORT INFORMATION
  Report Type: 
  Country: None (occurrence: None)
  Receive Date: 20051222
  Receipt Date: 20050822
  Transmission Date: 20060501
  Serious: Yes (Life-Threatening, Hospitalization)
  Sender: FDA-Public Use
  Company Number: 2005GB01621

PATIENT
  Age: 72 Year
  Sex: Female
  Weight: 65 kg

DRUGS (11)
  1. ARIMIDEX [Suspect]
     Indication: BREAST CANCER
     Route: 048
     Dates: start: 20050526, end: 20050708
  2. TAMOXIFEN [Suspect]
     Route: 048
     Dates: start: 20041122, end: 20050522
  3. NIFEDIPINE [Concomitant]
     Indication: HYPERTENSION
     Route: 048
  4. ARTHROTEC [Concomitant]
     Indication: ARTHRITIS
     Route: 048
     Dates: start: 19880101
  5. SALBUTAMOL NEBULISER SOLUTION [Concomitant]
     Indication: ASTHMA
     Dosage: 2.5 MG/ML FIVE DAILY AS REQUIRED
     Route: 055
  6. BECLOMETHASONE DIPROPIONATE [Concomitant]
     Indication: ASTHMA
     Dosage: 100 UG/ACTUATION
     Route: 055
  7. CORACTEN M/R [Concomitant]
     Dosage: TAKEN FOR MANY YEARS
     Route: 048
  8. OILATUM EMOLLIENT [Concomitant]
     Dosage: USE AS DIRECTED
  9. PARACETAMOL [Concomitant]
     Route: 048
  10. SALBUTAMOL CFC-FREE INHALER [Concomitant]
     Dosage: 100 UG/PUFF
  11. E45 CREAM [Concomitant]
     Route: 061

REACTIONS (20)
  - ANAEMIA [None]
  - APLASTIC ANAEMIA [None]
  - ASTHENIA [None]
  - BALANCE DISORDER [None]
  - BONE MARROW FAILURE [None]
  - CONTUSION [None]
  - COUGH [None]
  - CYSTITIS [None]
  - DYSPEPSIA [None]
  - DYSPNOEA [None]
  - EPISTAXIS [None]
  - FLUSHING [None]
  - MOUTH ULCERATION [None]
  - MUSCULAR WEAKNESS [None]
  - NEUTROPENIA [None]
  - PHARYNGITIS [None]
  - POLLAKIURIA [None]
  - SNEEZING [None]
  - THROMBOCYTOPENIA [None]
  - WEIGHT INCREASED [None]
